FAERS Safety Report 8584141-3 (Version None)
Quarter: 2012Q3

REPORT INFORMATION
  Report Type: 
  Country: None (occurrence: None)
  Receive Date: 20120810
  Receipt Date: 20120802
  Transmission Date: 20120928
  Serious: No
  Sender: FDA-Public Use
  Company Number: US-009507513-1208USA001072

PATIENT

DRUGS (5)
  1. RIBAVIRIN [Suspect]
     Dosage: 600 (UNITS UNKNOWN)
  2. PEG-INTRON [Suspect]
     Dosage: 150 MICROGRAM/0.5 ML, QW
     Route: 058
  3. MAPAP PM [Concomitant]
  4. VICTRELIS [Suspect]
  5. VITAMINS (UNSPECIFIED) [Concomitant]

REACTIONS (1)
  - FATIGUE [None]
